FAERS Safety Report 6357682-7 (Version None)
Quarter: 2009Q3

REPORT INFORMATION
  Report Type: 
  Country: None (occurrence: None)
  Receive Date: 20090916
  Receipt Date: 20090911
  Transmission Date: 20100115
  Serious: Yes (Life-Threatening)
  Sender: FDA-Public Use
  Company Number: CH-BRISTOL-MYERS SQUIBB COMPANY-14763304

PATIENT
  Age: 29 Year
  Sex: Male
  Weight: 92 kg

DRUGS (4)
  1. PLATINOL [Suspect]
     Indication: TESTIS CANCER
     Dosage: 1 DF = 18.5 MG/M2 WITH 2.16 M2
     Route: 042
     Dates: start: 20090726
  2. BLEOMYCIN SULFATE [Suspect]
     Indication: TESTIS CANCER
     Dosage: 30000 IE IN NACI 0.9 % BOLUS AND 20 ML
     Route: 042
     Dates: start: 20090726, end: 20090831
  3. ETOPOPHOS PRESERVATIVE FREE [Suspect]
     Indication: TESTIS CANCER
     Dosage: 104.5 MG/M2 WITH 2.16 M2
     Route: 042
     Dates: start: 20090726
  4. EMEND [Suspect]
     Indication: TESTIS CANCER
     Dosage: 125 MG AND 2 X 80 MG
     Route: 048
     Dates: start: 20090726

REACTIONS (1)
  - INTRACRANIAL VENOUS SINUS THROMBOSIS [None]
